FAERS Safety Report 12170706 (Version 2)
Quarter: 2016Q1

REPORT INFORMATION
  Report Type: Spontaneous
  Country: RS (occurrence: RS)
  Receive Date: 20160311
  Receipt Date: 20160322
  Transmission Date: 20160526
  Serious: Yes (Death)
  Sender: FDA-Public Use
  Company Number: RS-ROCHE-1724082

PATIENT
  Sex: Male

DRUGS (1)
  1. MABTHERA [Suspect]
     Active Substance: RITUXIMAB
     Indication: NON-HODGKIN^S LYMPHOMA
     Route: 065
     Dates: end: 20160308

REACTIONS (1)
  - Death [Fatal]

NARRATIVE: CASE EVENT DATE: 20160309
